FAERS Safety Report 4666070-0 (Version None)
Quarter: 2005Q2

REPORT INFORMATION
  Report Type: 
  Country: None (occurrence: None)
  Receive Date: 20050519
  Receipt Date: 20050413
  Transmission Date: 20051028
  Serious: Yes (Hospitalization)
  Sender: FDA-Public Use
  Company Number: US-GLAXOSMITHKLINE-A0554042A

PATIENT
  Age: 47 Year
  Sex: Female

DRUGS (8)
  1. LOTRONEX [Suspect]
     Indication: IRRITABLE BOWEL SYNDROME
     Dosage: 1MG PER DAY
     Route: 048
     Dates: start: 20050222, end: 20050413
  2. TOPROL-XL [Concomitant]
  3. BENECOL [Concomitant]
  4. NORVASC [Concomitant]
  5. GYNODIOL [Concomitant]
  6. NEXIUM [Concomitant]
  7. PAXIL [Concomitant]
  8. LIPITOR [Concomitant]

REACTIONS (4)
  - ABDOMINAL PAIN [None]
  - BACK PAIN [None]
  - FAECAL OCCULT BLOOD POSITIVE [None]
  - HAEMORRHOIDAL HAEMORRHAGE [None]
